FAERS Safety Report 11485764 (Version 1)
Quarter: 2015Q3

REPORT INFORMATION
  Report Type: Spontaneous
  Country: US (occurrence: None)
  Receive Date: 20150909
  Receipt Date: 20150909
  Transmission Date: 20151125
  Serious: Yes (Life-Threatening, Hospitalization, Disabling)
  Sender: FDA-Public Use
  Company Number: None

PATIENT
  Age: 50 Year
  Sex: Male
  Weight: 102.06 kg

DRUGS (1)
  1. TESTOSTERONE, COMPOUNDED 250ML/CC [Suspect]
     Active Substance: TESTOSTERONE
     Indication: HORMONE REPLACEMENT THERAPY
     Dosage: INJECT 1.5CC EVERY 4 DAYS
     Route: 030
     Dates: start: 20150728, end: 20150728

REACTIONS (12)
  - Impaired work ability [None]
  - Asthenia [None]
  - Abdominal pain [None]
  - Inflammation [None]
  - Night sweats [None]
  - Injection site pain [None]
  - Myosclerosis [None]
  - Injection site rash [None]
  - Skin warm [None]
  - Rash generalised [None]
  - Feeding disorder [None]
  - Vasculitis [None]

NARRATIVE: CASE EVENT DATE: 20150728
